FAERS Safety Report 9496898 (Version 1)
Quarter: 2013Q3

REPORT INFORMATION
  Report Type: Spontaneous
  Country: FR (occurrence: None)
  Receive Date: 20130830
  Receipt Date: 20130830
  Transmission Date: 20140515
  Serious: Yes (Life-Threatening, Other)
  Sender: FDA-Public Use
  Company Number: 2013P1018769

PATIENT
  Age: 51 Year
  Sex: Female

DRUGS (1)
  1. HEPARIN [Suspect]
     Indication: PULMONARY EMBOLISM
     Route: 042

REACTIONS (4)
  - Overdose [None]
  - Puncture site haemorrhage [None]
  - Intracranial haematoma [None]
  - Procedural haemorrhage [None]
